FAERS Safety Report 17750388 (Version 3)
Quarter: 2020Q2

REPORT INFORMATION
  Report Type: Spontaneous
  Country: US (occurrence: US)
  Receive Date: 20200506
  Receipt Date: 20200520
  Transmission Date: 20200714
  Serious: Yes (Other)
  Sender: FDA-Public Use
  Company Number: US-PFIZER INC-2020180785

PATIENT
  Age: 62 Year
  Sex: Female
  Weight: 81.65 kg

DRUGS (2)
  1. FASLODEX [Concomitant]
     Active Substance: FULVESTRANT
     Indication: BREAST CANCER METASTATIC
     Dosage: UNK, MONTHLY (BONE INFUSION)
  2. IBRANCE [Suspect]
     Active Substance: PALBOCICLIB
     Indication: BREAST CANCER METASTATIC
     Dosage: 125 MG, CYCLIC (ONCE A DAY FOR 21 DAYS)
     Route: 048
     Dates: start: 202003

REACTIONS (7)
  - Dyspepsia [Unknown]
  - Fatigue [Unknown]
  - Abdominal distension [Unknown]
  - Neoplasm progression [Unknown]
  - Abdominal discomfort [Not Recovered/Not Resolved]
  - White blood cell count decreased [Not Recovered/Not Resolved]
  - Nausea [Not Recovered/Not Resolved]
